FAERS Safety Report 5972190-0 (Version None)
Quarter: 2008Q4

REPORT INFORMATION
  Report Type: 
  Country: None (occurrence: None)
  Receive Date: 20081201
  Receipt Date: 20071018
  Transmission Date: 20090506
  Serious: No
  Sender: FDA-Public Use
  Company Number: US-TEVA-163203USA

PATIENT
  Sex: Male
  Weight: 89.892 kg

DRUGS (6)
  1. SALBUTAMOL SULFATE INHALATION, 0.09 MG [Suspect]
     Indication: CHRONIC OBSTRUCTIVE PULMONARY DISEASE
     Route: 048
  2. FLUTICASONE PROPIONATE [Concomitant]
     Route: 048
  3. AZITHROMYCIN [Concomitant]
  4. TIOTROPIUM BROMIDE [Concomitant]
  5. LISINOPRIL [Concomitant]
  6. ALBUTEROL SULFATE [Concomitant]
     Route: 048

REACTIONS (1)
  - DRUG INEFFECTIVE [None]
